FAERS Safety Report 5292850-7 (Version None)
Quarter: 2007Q2

REPORT INFORMATION
  Report Type: 
  Country: None (occurrence: None)
  Receive Date: 20070411
  Receipt Date: 20070223
  Transmission Date: 20071010
  Serious: Yes (Other)
  Sender: FDA-Public Use
  Company Number: FR-RB-005684-07

PATIENT
  Age: 24 Month
  Sex: Male

DRUGS (1)
  1. SUBUTEX [Suspect]
     Route: 065

REACTIONS (5)
  - ACCIDENTAL EXPOSURE [None]
  - DYSPNOEA [None]
  - GLASGOW COMA SCALE [None]
  - MIOSIS [None]
  - SOMNOLENCE [None]
